FAERS Safety Report 6869060-2 (Version None)
Quarter: 2010Q3

REPORT INFORMATION
  Report Type: 
  Country: None (occurrence: None)
  Receive Date: 20100722
  Receipt Date: 20100722
  Transmission Date: 20110219
  Serious: Yes (Hospitalization)
  Sender: FDA-Public Use
  Company Number: None

PATIENT
  Sex: Female
  Weight: 93.2 kg

DRUGS (10)
  1. SORAFENIB 200MG [Suspect]
     Indication: BREAST CANCER METASTATIC
     Dosage: 200MG BID PO
     Route: 048
     Dates: start: 20100210, end: 20100609
  2. VINORELBINE TARTRATE [Suspect]
     Indication: BREAST CANCER METASTATIC
     Dosage: 42.6 MG IV WEEKLY
     Route: 042
     Dates: start: 20100210, end: 20100616
  3. BENAZEPRIL HYDROCHLORIDE [Concomitant]
  4. GABAPENTIN [Concomitant]
  5. GLIPIZIDE [Concomitant]
  6. GLUCOPHAGE [Concomitant]
  7. LOPID [Concomitant]
  8. TRAMADOL HYDROCHLORIDE [Concomitant]
  9. ZOCOR [Concomitant]
  10. ZOLPIDEM [Concomitant]

REACTIONS (1)
  - CATHETER SITE INFECTION [None]
